FAERS Safety Report 13077695 (Version 1)
Quarter: 2017Q1

REPORT INFORMATION
  Report Type: Spontaneous
  Country: GB (occurrence: GB)
  Receive Date: 20170101
  Receipt Date: 20170101
  Transmission Date: 20170428
  Serious: Yes (Hospitalization)
  Sender: FDA-Public Use
  Company Number: GB-DEXPHARM-20162490

PATIENT
  Age: 84 Year

DRUGS (5)
  1. METFORMIN [Suspect]
     Active Substance: METFORMIN HYDROCHLORIDE
  2. DOXAZOSIN [Suspect]
     Active Substance: DOXAZOSIN\DOXAZOSIN MESYLATE
     Dosage: DAILY DOSE: 8 MG MILLGRAM(S) EVERY DAYS
  3. PRAVASTATIN. [Concomitant]
     Active Substance: PRAVASTATIN
  4. BENDROFLUMETHIAZIDE [Suspect]
     Active Substance: BENDROFLUMETHIAZIDE
     Dosage: DAILY DOSE: 2.5 MG MILLGRAM(S) EVERY DAYS
  5. OMEPRAZOLE. [Suspect]
     Active Substance: OMEPRAZOLE
     Dosage: DAILY DOSE: 20 MG MILLGRAM(S) EVERY DAYS

REACTIONS (2)
  - Drug ineffective [Unknown]
  - Hyponatraemia [Unknown]
